FAERS Safety Report 8213399-5 (Version None)
Quarter: 2012Q1

REPORT INFORMATION
  Report Type: 
  Country: None (occurrence: None)
  Receive Date: 20120315
  Receipt Date: 20120308
  Transmission Date: 20120608
  Serious: Yes (Other)
  Sender: FDA-Public Use
  Company Number: PHHY2012US020770

PATIENT
  Age: 60 Year
  Sex: Female

DRUGS (3)
  1. OXALIPLATIN [Concomitant]
     Indication: COLON CANCER STAGE III
  2. LEUCOVORIN CALCIUM [Concomitant]
     Indication: COLON CANCER STAGE III
  3. FLUOROURACIL [Suspect]
     Indication: COLON CANCER STAGE III

REACTIONS (9)
  - CHEST DISCOMFORT [None]
  - VENTRICULAR HYPOKINESIA [None]
  - COLON CANCER RECURRENT [None]
  - TACHYCARDIA [None]
  - LEFT VENTRICULAR END-DIASTOLIC PRESSURE INCREASED [None]
  - EJECTION FRACTION DECREASED [None]
  - STRESS CARDIOMYOPATHY [None]
  - LEFT VENTRICULAR DYSFUNCTION [None]
  - CHEST PAIN [None]
